FAERS Safety Report 6670292-7 (Version None)
Quarter: 2010Q2

REPORT INFORMATION
  Report Type: 
  Country: None (occurrence: None)
  Receive Date: 20100405
  Receipt Date: 20100319
  Transmission Date: 20101027
  Serious: Yes (Hospitalization, Other)
  Sender: FDA-Public Use
  Company Number: 2010000952

PATIENT
  Age: 60 Year
  Sex: Female

DRUGS (2)
  1. TARCEVA [Suspect]
     Indication: NON-SMALL CELL LUNG CANCER
     Dosage: 9150 MG, QD), ORAL
     Route: 048
     Dates: start: 20090401, end: 20090701
  2. TARCEVA [Suspect]
     Indication: NON-SMALL CELL LUNG CANCER
     Dosage: 9150 MG, QD), ORAL
     Route: 048
     Dates: start: 20090801, end: 20100315

REACTIONS (9)
  - APHASIA [None]
  - CEREBRAL ATROPHY [None]
  - DECREASED APPETITE [None]
  - DYSPHAGIA [None]
  - FAECAL INCONTINENCE [None]
  - LOSS OF CONSCIOUSNESS [None]
  - MUSCULAR WEAKNESS [None]
  - NUCLEAR MAGNETIC RESONANCE IMAGING BRAIN ABNORMAL [None]
  - URINARY INCONTINENCE [None]
